FAERS Safety Report 4338178-0 (Version None)
Quarter: 2004Q1

REPORT INFORMATION
  Report Type: 
  Country: None (occurrence: None)
  Receive Date: 20040329
  Receipt Date: 20040210
  Transmission Date: 20041129
  Serious: No
  Sender: FDA-Public Use
  Company Number: USA040258989

PATIENT
  Age: 11 Year
  Sex: Female
  Weight: 38 kg

DRUGS (1)
  1. STRATTERA [Suspect]
     Dosage: 40 MG/DAY
     Dates: start: 20040101

REACTIONS (2)
  - ABDOMINAL PAIN UPPER [None]
  - FEELING ABNORMAL [None]
